FAERS Safety Report 5224764-2 (Version None)
Quarter: 2007Q1

REPORT INFORMATION
  Report Type: 
  Country: None (occurrence: None)
  Receive Date: 20070129
  Receipt Date: 20070129
  Transmission Date: 20070707
  Serious: No
  Sender: FDA-Public Use
  Company Number: None

PATIENT
  Sex: Female
  Weight: 72.5755 kg

DRUGS (1)
  1. LITHIUM CARBONATE 300 MG GENERIC THRU EXPRESS SCRIPTS [Suspect]
     Indication: BIPOLAR DISORDER
     Dosage: 300 MG 3 X DAILY PO
     Route: 048
     Dates: start: 19850101, end: 20050523

REACTIONS (2)
  - RENAL IMPAIRMENT [None]
  - THERAPEUTIC AGENT TOXICITY [None]
